FAERS Safety Report 4294760-0 (Version None)
Quarter: 2004Q1

REPORT INFORMATION
  Report Type: 
  Country: None (occurrence: None)
  Receive Date: 20040213
  Receipt Date: 20011210
  Transmission Date: 20041129
  Serious: Yes (Other)
  Sender: FDA-Public Use
  Company Number: WAES 0112USA01110M

PATIENT
  Age: 32 Year
  Sex: Female

DRUGS (3)
  1. ASPIRIN [Concomitant]
     Dates: start: 20010601
  2. SINGULAIR [Suspect]
     Indication: ASTHMA
     Route: 048
     Dates: start: 20010801, end: 20020610
  3. VITAMINS (UNSPECIFIED) [Concomitant]
     Dates: start: 20010601

REACTIONS (7)
  - APGAR SCORE LOW [None]
  - CAESAREAN SECTION [None]
  - CEPHALO-PELVIC DISPROPORTION [None]
  - DRUG EXPOSURE DURING PREGNANCY [None]
  - MATERNAL DRUGS AFFECTING FOETUS [None]
  - PRE-AURICULAR SINUS CONGENITAL [None]
  - PREGNANCY [None]
